FAERS Safety Report 17201857 (Version 3)
Quarter: 2020Q2

REPORT INFORMATION
  Report Type: Report from Study
  Country: JP (occurrence: JP)
  Receive Date: 20191226
  Receipt Date: 20200416
  Transmission Date: 20200713
  Serious: Yes (Hospitalization)
  Sender: FDA-Public Use
  Company Number: JP-EISAI MEDICAL RESEARCH-EC-2019-067586

PATIENT
  Age: 67 Year
  Sex: Male
  Weight: 81 kg

DRUGS (13)
  1. IA-CALL [Suspect]
     Active Substance: CISPLATIN
     Route: 013
     Dates: start: 20191119, end: 20191119
  2. AMARYL [Concomitant]
     Active Substance: GLIMEPIRIDE
  3. CLOPIDOGREL SULFATE [Concomitant]
     Active Substance: CLOPIDOGREL BISULFATE
  4. IA-CALL [Suspect]
     Active Substance: CISPLATIN
     Indication: HEPATOCELLULAR CARCINOMA
     Route: 013
     Dates: start: 20190724, end: 20190724
  5. LENVATINIB [Suspect]
     Active Substance: LENVATINIB
     Route: 048
     Dates: start: 20190917, end: 20191209
  6. IA-CALL [Suspect]
     Active Substance: CISPLATIN
     Route: 013
     Dates: start: 20190827, end: 20190827
  7. BISOPROLOL FUMARATE. [Concomitant]
     Active Substance: BISOPROLOL FUMARATE
  8. BAYASPIRIN [Concomitant]
     Active Substance: ASPIRIN
  9. LENVATINIB [Suspect]
     Active Substance: LENVATINIB
     Route: 048
     Dates: start: 20191224
  10. OLMESARTAN OD [Concomitant]
     Active Substance: OLMESARTAN MEDOXOMIL
  11. LENVATINIB [Suspect]
     Active Substance: LENVATINIB
     Indication: HEPATOCELLULAR CARCINOMA
     Route: 048
     Dates: start: 20190724, end: 20190916
  12. REZALTAS [Concomitant]
     Active Substance: AZELNIDIPINE\OLMESARTAN MEDOXOMIL
  13. IA-CALL [Suspect]
     Active Substance: CISPLATIN
     Route: 013
     Dates: start: 20191008, end: 20191008

REACTIONS (1)
  - Renal disorder [Recovered/Resolved]

NARRATIVE: CASE EVENT DATE: 20191210
